FAERS Safety Report 9349096 (Version 1)
Quarter: 2013Q2

REPORT INFORMATION
  Report Type: Spontaneous
  Country: US (occurrence: US)
  Receive Date: 20130614
  Receipt Date: 20130614
  Transmission Date: 20140414
  Serious: Yes (Other)
  Sender: FDA-Public Use
  Company Number: US-PFIZER INC-2013179856

PATIENT
  Age: 78 Year
  Sex: Female
  Weight: 56.69 kg

DRUGS (7)
  1. LYRICA [Suspect]
     Indication: HERPES ZOSTER
     Dosage: 50 MG, 3X/DAY
     Dates: start: 201304, end: 2013
  2. LYRICA [Suspect]
     Indication: NEURALGIA
     Dosage: 100 MG, 2X/DAY
     Dates: start: 2013, end: 2013
  3. LYRICA [Suspect]
     Dosage: 100 MG, 1X/DAY
     Dates: start: 2013
  4. LYRICA [Suspect]
     Dosage: 50 MG, 1X/DAY
     Dates: end: 2013
  5. LEVOTHYROXINE SODIUM [Concomitant]
     Indication: THYROID DISORDER
     Dosage: 75 UG, 1X/DAY
  6. LEVOTHYROXINE SODIUM [Concomitant]
     Dosage: HALF OF 75 MCG
  7. SIMVASTATIN [Concomitant]
     Indication: BLOOD CHOLESTEROL ABNORMAL
     Dosage: 20MG DAILY

REACTIONS (6)
  - Brain oedema [Unknown]
  - Dizziness [Unknown]
  - Nervousness [Unknown]
  - Headache [Unknown]
  - Depression [Unknown]
  - Stress [Unknown]
